FAERS Safety Report 14979649 (Version 1)
Quarter: 2018Q2

REPORT INFORMATION
  Report Type: Spontaneous
  Country: CA (occurrence: CA)
  Receive Date: 20180606
  Receipt Date: 20180606
  Transmission Date: 20180711
  Serious: Yes (Other)
  Sender: FDA-Public Use
  Company Number: CA-CELLTRION INC.-2017CA013252

PATIENT

DRUGS (8)
  1. INFLECTRA [Suspect]
     Active Substance: INFLIXIMAB-DYYB
     Dosage: 470 MG, CYCLIC (EVERY 2 WEEKS); INTRAVENOUS
     Route: 042
     Dates: start: 20170712, end: 20180405
  2. AZATHIOPRINE. [Concomitant]
     Active Substance: AZATHIOPRINE
     Dosage: UNK
     Dates: start: 2014
  3. VSL 3 [Concomitant]
     Active Substance: PROBIOTICS NOS
     Dosage: UNK
     Dates: start: 2015, end: 2017
  4. DEXILANT [Concomitant]
     Active Substance: DEXLANSOPRAZOLE
     Dosage: UNK
  5. DOMPERIDONE [Concomitant]
     Active Substance: DOMPERIDONE
     Dosage: UNK
  6. INFLECTRA [Suspect]
     Active Substance: INFLIXIMAB-DYYB
     Indication: COLITIS ULCERATIVE
     Dosage: 470 MG, CYCLIC (EVERY 2 WEEKS)
     Route: 042
     Dates: start: 20180216
  7. INFLECTRA [Suspect]
     Active Substance: INFLIXIMAB-DYYB
     Dosage: 10 MG/KG, CYCLIC (EVERY6 WEEKS); INTRAVENOUS
     Route: 042
     Dates: start: 20180529
  8. BACTRIM [Concomitant]
     Active Substance: SULFAMETHOXAZOLE\TRIMETHOPRIM
     Dosage: UNK

REACTIONS (7)
  - Drug effect incomplete [Unknown]
  - Weight increased [Unknown]
  - Condition aggravated [Unknown]
  - Off label use [Unknown]
  - Product use issue [Unknown]
  - Colitis ulcerative [Unknown]
  - Product use issue [Unknown]

NARRATIVE: CASE EVENT DATE: 20180528
